FAERS Safety Report 5918642-0 (Version None)
Quarter: 2008Q4

REPORT INFORMATION
  Report Type: 
  Country: None (occurrence: None)
  Receive Date: 20081010
  Receipt Date: 20080924
  Transmission Date: 20090506
  Serious: Yes (Hospitalization, Disabling)
  Sender: FDA-Public Use
  Company Number: 0208

PATIENT
  Sex: Female

DRUGS (1)
  1. METHYLDOPA [Suspect]
     Indication: PREGNANCY INDUCED HYPERTENSION
     Dosage: 750 MG/1500 MG

REACTIONS (5)
  - DEVELOPMENTAL DELAY [None]
  - EPILEPSY [None]
  - HYPOGLYCAEMIA NEONATAL [None]
  - MATERNAL DRUGS AFFECTING FOETUS [None]
  - NEONATAL DISORDER [None]
